FAERS Safety Report 23692364 (Version 2)
Quarter: 2024Q2

REPORT INFORMATION
  Report Type: Spontaneous
  Country: AU (occurrence: AU)
  Receive Date: 20240401
  Receipt Date: 20240417
  Transmission Date: 20240716
  Serious: Yes (Death)
  Sender: FDA-Public Use
  Company Number: AU-Medison-000103

PATIENT

DRUGS (1)
  1. TEBENTAFUSP [Suspect]
     Active Substance: TEBENTAFUSP
     Indication: Metastatic ocular melanoma
     Dosage: UNK, SINGLE, DOSE 3

REACTIONS (3)
  - Uveal melanoma [Fatal]
  - Condition aggravated [Fatal]
  - Malaise [Unknown]
